FAERS Safety Report 4945122-1 (Version None)
Quarter: 2006Q1

REPORT INFORMATION
  Report Type: 
  Country: None (occurrence: None)
  Receive Date: 20060314
  Receipt Date: 20060314
  Transmission Date: 20060701
  Serious: No
  Sender: FDA-Public Use
  Company Number: None

PATIENT
  Age: 36 Year
  Sex: Male

DRUGS (10)
  1. LEVAQUIN [Suspect]
     Dates: start: 20041108, end: 20041113
  2. VALPROIC ACID [Suspect]
     Dates: start: 20041216, end: 20041229
  3. LEVAQUIN [Concomitant]
  4. L-CARNITINE [Concomitant]
  5. LAMICTAL [Concomitant]
  6. LISINOPRIL [Concomitant]
  7. PROTONIX [Concomitant]
  8. PREVACID [Concomitant]
  9. MULTI-VITAMIN [Concomitant]
  10. LORATADINE [Concomitant]

REACTIONS (17)
  - ALANINE AMINOTRANSFERASE INCREASED [None]
  - ASPARTATE AMINOTRANSFERASE INCREASED [None]
  - BILIRUBIN CONJUGATED INCREASED [None]
  - BLOOD ALKALINE PHOSPHATASE INCREASED [None]
  - BLOOD BILIRUBIN INCREASED [None]
  - CHOLESTASIS [None]
  - DECREASED APPETITE [None]
  - DRUG INTERACTION [None]
  - HAEMATEMESIS [None]
  - HEPATOCELLULAR DAMAGE [None]
  - INTERNATIONAL NORMALISED RATIO INCREASED [None]
  - JAUNDICE [None]
  - LIVER DISORDER [None]
  - ORAL INTAKE REDUCED [None]
  - PHARMACEUTICAL PRODUCT COMPLAINT [None]
  - PROTHROMBIN TIME PROLONGED [None]
  - PRURITUS GENERALISED [None]
